FAERS Safety Report 13562039 (Version 1)
Quarter: 2017Q2

REPORT INFORMATION
  Report Type: Spontaneous
  Country: BR (occurrence: BR)
  Receive Date: 20170518
  Receipt Date: 20170518
  Transmission Date: 20170830
  Serious: Yes (Other)
  Sender: FDA-Public Use
  Company Number: BR-JNJFOC-20170514908

PATIENT
  Age: 15 Year
  Sex: Male
  Weight: 52 kg

DRUGS (3)
  1. ZYRTEC [Suspect]
     Active Substance: CETIRIZINE HYDROCHLORIDE
     Indication: RESPIRATORY DISORDER
     Route: 048
     Dates: start: 20170506, end: 20170506
  2. TYLENOL SINUS [Suspect]
     Active Substance: ACETAMINOPHEN\DIPHENHYDRAMINE
     Indication: RESPIRATORY DISORDER
     Dosage: 1 DF (500 MG)
     Route: 048
     Dates: start: 20170506, end: 20170506
  3. ZYRTEC [Suspect]
     Active Substance: CETIRIZINE HYDROCHLORIDE
     Route: 048

REACTIONS (1)
  - Respiratory disorder [Unknown]

NARRATIVE: CASE EVENT DATE: 20170506
